FAERS Safety Report 6223462-6 (Version None)
Quarter: 2009Q2

REPORT INFORMATION
  Report Type: 
  Country: None (occurrence: None)
  Receive Date: 20090610
  Receipt Date: 20090602
  Transmission Date: 20091009
  Serious: Yes (Death, Other)
  Sender: FDA-Public Use
  Company Number: US-WYE-H03801108

PATIENT
  Age: 50 Year
  Sex: Female

DRUGS (2)
  1. PREMARIN [Suspect]
  2. PROGESTIN INJ [Suspect]

REACTIONS (8)
  - BREAST CANCER FEMALE [None]
  - CARDIOVASCULAR DISORDER [None]
  - COLON CANCER METASTATIC [None]
  - DEEP VEIN THROMBOSIS [None]
  - METASTASES TO BONE [None]
  - METASTASES TO LUNG [None]
  - METASTASES TO OVARY [None]
  - PULMONARY EMBOLISM [None]
